FAERS Safety Report 4834236-2 (Version None)
Quarter: 2005Q4

REPORT INFORMATION
  Report Type: 
  Country: None (occurrence: None)
  Receive Date: 20051122
  Receipt Date: 20050830
  Transmission Date: 20060501
  Serious: Yes (Hospitalization, Disabling, Other)
  Sender: FDA-Public Use
  Company Number: US-MERCK-0509USA00132

PATIENT
  Age: 49 Year
  Sex: Male
  Weight: 118 kg

DRUGS (6)
  1. VIOXX [Suspect]
     Indication: ARTHRITIS
     Route: 048
     Dates: start: 20020227, end: 20040906
  2. VIOXX [Suspect]
     Route: 048
     Dates: start: 20000131, end: 20000201
  3. VIOXX [Suspect]
     Route: 048
     Dates: start: 20020227, end: 20040906
  4. WELLBUTRIN [Concomitant]
     Indication: DEPRESSION
     Route: 065
  5. VICODIN [Concomitant]
     Indication: PAIN
     Route: 065
     Dates: start: 19980413, end: 20030601
  6. XANAX [Concomitant]
     Indication: DEPRESSION
     Route: 065

REACTIONS (20)
  - ANGINA PECTORIS [None]
  - ASTHMA [None]
  - BACTERIAL INFECTION [None]
  - BLOOD CHOLESTEROL INCREASED [None]
  - CARDIAC DISORDER [None]
  - CATARACT [None]
  - CATARACT OPERATION [None]
  - CHEST PAIN [None]
  - COUGH [None]
  - ERECTILE DYSFUNCTION [None]
  - GASTROOESOPHAGEAL REFLUX DISEASE [None]
  - HYPERCHLORHYDRIA [None]
  - HYPERSENSITIVITY [None]
  - HYPERTENSION [None]
  - INFECTION [None]
  - INSOMNIA [None]
  - MYOCARDIAL INFARCTION [None]
  - OEDEMA [None]
  - ROTATOR CUFF SYNDROME [None]
  - SINUS DISORDER [None]
